FAERS Safety Report 18657635 (Version 2)
Quarter: 2021Q1

REPORT INFORMATION
  Report Type: Report from Study
  Country: DE (occurrence: DE)
  Receive Date: 20201224
  Receipt Date: 20210119
  Transmission Date: 20210419
  Serious: Yes (Hospitalization, Other)
  Sender: FDA-Public Use
  Company Number: DE-ROCHE-2728343

PATIENT
  Age: 67 Year
  Sex: Male
  Weight: 96 kg

DRUGS (10)
  1. ACALABRUTINIB. [Suspect]
     Active Substance: ACALABRUTINIB
     Indication: CHRONIC LYMPHOCYTIC LEUKAEMIA REFRACTORY
     Dosage: LAST DOSE OF ACALABRUTINIB (200 MG) WAS TAKEN ON 17/NOV/2020
     Route: 048
     Dates: start: 20200527
  2. OXAZEPAM. [Concomitant]
     Active Substance: OXAZEPAM
     Route: 048
     Dates: start: 20201207
  3. MACROGOL [Concomitant]
     Active Substance: POLYETHYLENE GLYCOLS
     Route: 048
     Dates: start: 20200310
  4. BENDAMUSTINE [Suspect]
     Active Substance: BENDAMUSTINE
     Indication: CHRONIC LYMPHOCYTIC LEUKAEMIA REFRACTORY
     Dosage: LAST DOSE OF BENDAMUSTINE (149.87 MG) WAS TAKEN ON 02/APR/2020.?2 DEBULKING CYCLES (Q 28D)
     Route: 042
     Dates: start: 20200401
  5. ENTECAVIR. [Concomitant]
     Active Substance: ENTECAVIR
     Route: 048
     Dates: start: 20200817
  6. FORMOTEROL [Concomitant]
     Active Substance: FORMOTEROL
     Route: 048
     Dates: start: 2018
  7. OBINUTUZUMAB. [Suspect]
     Active Substance: OBINUTUZUMAB
     Indication: CHRONIC LYMPHOCYTIC LEUKAEMIA REFRACTORY
     Dosage: LAST DOSE OF OBINUTUZUMAB (1000 MG) WAS TAKEN ON 17/AUG/2020.
     Route: 042
     Dates: start: 20200428
  8. VENETOCLAX. [Suspect]
     Active Substance: VENETOCLAX
     Indication: CHRONIC LYMPHOCYTIC LEUKAEMIA REFRACTORY
     Dosage: LAST DOSE OF VENETOCLAX (200 MG) WAS TAKEN ON 22/DEC/2020.
     Route: 048
     Dates: start: 20200622
  9. NOVAMINSULFON [Concomitant]
     Active Substance: METAMIZOLE
     Dosage: 500 MG/ML
     Route: 048
     Dates: start: 20200427
  10. CANDESARTAN. [Concomitant]
     Active Substance: CANDESARTAN
     Route: 048
     Dates: start: 202001

REACTIONS (2)
  - Adenocarcinoma [Not Recovered/Not Resolved]
  - Prostate cancer [Not Recovered/Not Resolved]

NARRATIVE: CASE EVENT DATE: 20201207
